FAERS Safety Report 8524768-8 (Version None)
Quarter: 2012Q3

REPORT INFORMATION
  Report Type: 
  Country: None (occurrence: None)
  Receive Date: 20120720
  Receipt Date: 20120709
  Transmission Date: 20120928
  Serious: Yes (Other)
  Sender: FDA-Public Use
  Company Number: DE-ROCHE-1088500

PATIENT
  Age: 70 Year
  Sex: Male

DRUGS (14)
  1. ELOXATIN [Concomitant]
     Dates: start: 20090101, end: 20091001
  2. LEUCOVORIN CALCIUM [Concomitant]
     Dates: start: 20090101, end: 20091001
  3. OXALIPLATIN [Concomitant]
     Dates: start: 20090101, end: 20090707
  4. IRINOTECAN HYDROCHLORIDE [Suspect]
     Indication: COLORECTAL CANCER METASTATIC
     Dates: start: 20070228, end: 20081216
  5. INSULIN [Concomitant]
     Indication: DIABETES MELLITUS
  6. FLUOROURACIL [Suspect]
     Indication: COLORECTAL CANCER METASTATIC
     Dates: start: 20070228, end: 20081216
  7. FLUOROURACIL [Suspect]
     Dates: start: 20090101, end: 20091020
  8. OXALIPLATIN [Concomitant]
     Dosage: DOSE REDUCED
     Dates: start: 20090707, end: 20090901
  9. AMLODIPINE [Concomitant]
     Indication: HYPERTENSION
  10. AVASTIN [Suspect]
     Indication: COLORECTAL CANCER METASTATIC
     Dates: start: 20070228, end: 20081216
  11. FOLINIC ACID [Suspect]
     Indication: COLORECTAL CANCER METASTATIC
     Dates: start: 20070228, end: 20081216
  12. IRINOTECAN HYDROCHLORIDE [Suspect]
     Dates: start: 20091101
  13. VECTIBIX [Concomitant]
     Dates: start: 20091101
  14. PANITUMUMAB [Concomitant]
     Dates: start: 20091101, end: 20110501

REACTIONS (7)
  - DISEASE PROGRESSION [None]
  - CARCINOEMBRYONIC ANTIGEN INCREASED [None]
  - METASTASES TO LUNG [None]
  - METASTASES TO PERITONEUM [None]
  - ASCITES [None]
  - POLYNEUROPATHY [None]
  - RASH [None]
